FAERS Safety Report 7756118-9 (Version None)
Quarter: 2011Q3

REPORT INFORMATION
  Report Type: 
  Country: None (occurrence: None)
  Receive Date: 20110916
  Receipt Date: 20101103
  Transmission Date: 20111222
  Serious: No
  Sender: FDA-Public Use
  Company Number: US-BAYER-201041235NA

PATIENT
  Age: 32 Year
  Sex: Female

DRUGS (2)
  1. MIRENA [Suspect]
     Dosage: SECOND MIRENA: 20 ?G, CONT
     Route: 015
  2. MIRENA [Suspect]
     Indication: CONTRACEPTION
     Dosage: FIRST MIRENA: 20 ?G, CONT
     Route: 015
     Dates: start: 20101101, end: 20101101

REACTIONS (2)
  - DEVICE INTOLERANCE [None]
  - DEVICE DIFFICULT TO USE [None]
